FAERS Safety Report 8273846-X (Version None)
Quarter: 2012Q2

REPORT INFORMATION
  Report Type: 
  Country: None (occurrence: None)
  Receive Date: 20120406
  Receipt Date: 20120406
  Transmission Date: 20120825
  Serious: Yes (Life-Threatening, Hospitalization)
  Sender: FDA-Public Use
  Company Number: None

PATIENT
  Sex: Male

DRUGS (1)
  1. ACTOS [Suspect]
     Indication: TYPE 2 DIABETES MELLITUS
     Dosage: 45MG ONCE A DAY ORAL
     Route: 048
     Dates: start: 20060901, end: 20110701

REACTIONS (1)
  - BLADDER TRANSITIONAL CELL CARCINOMA [None]
